FAERS Safety Report 9153446 (Version 1)
Quarter: 2013Q1

REPORT INFORMATION
  Report Type: Spontaneous
  Country: US (occurrence: None)
  Receive Date: 20130204
  Receipt Date: 20130204
  Transmission Date: 20140127
  Serious: Yes (Hospitalization)
  Sender: FDA-Public Use
  Company Number: TC12013A00336

PATIENT
  Age: 79 Year
  Sex: Female

DRUGS (3)
  1. NESINA [Suspect]
     Indication: TYPE 2 DIABETES MELLITUS
     Route: 004
     Dates: end: 20130121
  2. AMARYL (GLIMEPIRIDE) [Concomitant]
  3. METGLUCO (METFORMIN HYDROCHLORIDE) [Concomitant]

REACTIONS (3)
  - Renal failure acute [None]
  - Hypoglycaemia [None]
  - Continuous haemodiafiltration [None]
